FAERS Safety Report 12154837 (Version 1)
Quarter: 2016Q1

REPORT INFORMATION
  Report Type: Spontaneous
  Country: JP (occurrence: JP)
  Receive Date: 20160307
  Receipt Date: 20160307
  Transmission Date: 20160526
  Serious: Yes (Other)
  Sender: FDA-Public Use
  Company Number: JP-CONCORDIA PHARMACEUTICALS INC.-CO-ZO-JP-2016-031

PATIENT
  Age: 15 Year
  Sex: Female

DRUGS (1)
  1. ZONEGRAN [Suspect]
     Active Substance: ZONISAMIDE
     Indication: PRODUCT USED FOR UNKNOWN INDICATION
     Dosage: UNKNOWN
     Route: 048
     Dates: start: 2013

REACTIONS (3)
  - Extrapyramidal disorder [Unknown]
  - Confusional state [Unknown]
  - Mental impairment [Unknown]
